FAERS Safety Report 5945662-2 (Version None)
Quarter: 2008Q4

REPORT INFORMATION
  Report Type: 
  Country: None (occurrence: None)
  Receive Date: 20081107
  Receipt Date: 20081027
  Transmission Date: 20090506
  Serious: Yes (Other)
  Sender: FDA-Public Use
  Company Number: US-PFIZER INC-2008092331

PATIENT
  Sex: Female
  Weight: 95.3 kg

DRUGS (6)
  1. CHANTIX [Suspect]
     Indication: SMOKING CESSATION THERAPY
     Dates: start: 20081005, end: 20081024
  2. DRUG, UNSPECIFIED [Concomitant]
     Indication: THYROID DISORDER
  3. ANTIDEPRESSANTS [Concomitant]
     Indication: DEPRESSION
  4. ANALGESICS [Concomitant]
     Indication: PAIN
  5. MUSCLE RELAXANTS [Concomitant]
  6. ALL OTHER THERAPEUTIC PRODUCTS [Concomitant]

REACTIONS (3)
  - DRUG DOSE OMISSION [None]
  - HYPERSENSITIVITY [None]
  - PHARYNGEAL OEDEMA [None]
